FAERS Safety Report 6679377-2 (Version None)
Quarter: 2010Q2

REPORT INFORMATION
  Report Type: 
  Country: None (occurrence: None)
  Receive Date: 20100413
  Receipt Date: 20100412
  Transmission Date: 20101027
  Serious: Yes (Hospitalization, Other)
  Sender: FDA-Public Use
  Company Number: ES-ROCHE-644125

PATIENT
  Sex: Female
  Weight: 51 kg

DRUGS (15)
  1. BLINDED BEVACIZUMAB [Suspect]
     Indication: DIFFUSE LARGE B-CELL LYMPHOMA
     Dosage: DOSE BLINDED, FORM: INFUSION
     Route: 042
     Dates: start: 20090508, end: 20090911
  2. BLINDED BEVACIZUMAB [Suspect]
     Dosage: DOSE BLINDED
     Route: 042
     Dates: start: 20090918, end: 20091030
  3. RITUXIMAB [Suspect]
     Indication: DIFFUSE LARGE B-CELL LYMPHOMA
     Dosage: FORM: INFUSION
     Route: 042
     Dates: start: 20090509, end: 20090911
  4. RITUXIMAB [Suspect]
     Route: 042
     Dates: start: 20090918, end: 20091030
  5. DOXORUBICIN HCL [Suspect]
     Indication: DIFFUSE LARGE B-CELL LYMPHOMA
     Dosage: FORM: INFUSION
     Route: 042
     Dates: start: 20090509
  6. VINCRISTINE [Suspect]
     Indication: DIFFUSE LARGE B-CELL LYMPHOMA
     Dosage: FORM: INFUSION
     Route: 042
     Dates: start: 20090509
  7. PREDNISOLONE [Suspect]
     Indication: DIFFUSE LARGE B-CELL LYMPHOMA
     Route: 048
     Dates: start: 20090509
  8. CYCLOPHOSPHAMIDE [Suspect]
     Indication: DIFFUSE LARGE B-CELL LYMPHOMA
     Dosage: FORM: INFUSION
     Route: 042
     Dates: start: 20090509
  9. OMEPRAZOLE [Concomitant]
     Dates: start: 20090505
  10. SEPTRIN FORTE [Concomitant]
     Dosage: DOSE: 4 TAB/WEEK
     Dates: start: 20090507
  11. ENOXAPARIN SODIUM [Concomitant]
     Dates: start: 20090507
  12. MICOSTATIN [Concomitant]
     Dates: start: 20090626
  13. ACYCLOVIR [Concomitant]
     Dates: start: 20090626
  14. LIDOCAINE [Concomitant]
     Dates: start: 20090627
  15. ENOXAPARIN SODIUM [Concomitant]
     Dates: start: 20090828

REACTIONS (4)
  - EJECTION FRACTION DECREASED [None]
  - FEBRILE NEUTROPENIA [None]
  - LYMPHOPENIA [None]
  - NEUTROPENIA [None]
